FAERS Safety Report 5598592-2 (Version None)
Quarter: 2008Q1

REPORT INFORMATION
  Report Type: 
  Country: None (occurrence: None)
  Receive Date: 20080122
  Receipt Date: 20080115
  Transmission Date: 20080703
  Serious: Yes (Hospitalization)
  Sender: FDA-Public Use
  Company Number: US-JNJFOC-20070904331

PATIENT
  Age: 42 Year
  Sex: Female
  Weight: 67.59 kg

DRUGS (2)
  1. REMICADE [Suspect]
     Route: 042
  2. REMICADE [Suspect]
     Indication: DRUG USE FOR UNKNOWN INDICATION
     Dosage: FIRST DOSE
     Route: 042

REACTIONS (3)
  - DRUG HYPERSENSITIVITY [None]
  - POLYARTHRITIS [None]
  - SERUM SICKNESS [None]
